FAERS Safety Report 8473778-8 (Version None)
Quarter: 2012Q2

REPORT INFORMATION
  Report Type: 
  Country: None (occurrence: None)
  Receive Date: 20120628
  Receipt Date: 20111118
  Transmission Date: 20120825
  Serious: Yes (Other)
  Sender: FDA-Public Use
  Company Number: US-MYLANLABS-2011S1023059

PATIENT
  Age: 50 Year
  Sex: Female
  Weight: 78.02 kg

DRUGS (5)
  1. BENADRYL [Concomitant]
     Route: 048
  2. COLACE [Concomitant]
     Route: 048
  3. RISPERDAL [Concomitant]
     Route: 030
     Dates: end: 20111102
  4. CLOZAPINE [Suspect]
     Indication: SCHIZOPHRENIA
     Route: 048
     Dates: start: 20110701, end: 20111102
  5. LITHIUM CARBONATE [Concomitant]

REACTIONS (2)
  - GRANULOCYTOPENIA [None]
  - LEUKOPENIA [None]
